FAERS Safety Report 11106575 (Version 1)
Quarter: 2015Q2

REPORT INFORMATION
  Report Type: Spontaneous
  Country: GB (occurrence: GB)
  Receive Date: 20150512
  Receipt Date: 20150512
  Transmission Date: 20150821
  Serious: Yes (Hospitalization, Other)
  Sender: FDA-Public Use
  Company Number: GB-TEVA-561193ISR

PATIENT

DRUGS (1)
  1. SALAMOL [Suspect]
     Active Substance: ALBUTEROL
     Route: 055

REACTIONS (12)
  - Syncope [Recovered/Resolved]
  - Circulatory collapse [Recovered/Resolved]
  - Condition aggravated [Unknown]
  - Dyspnoea [Recovering/Resolving]
  - Palpitations [Unknown]
  - Insomnia [Unknown]
  - Blood potassium decreased [Unknown]
  - Dizziness [Unknown]
  - Malaise [Unknown]
  - Seizure [Recovered/Resolved]
  - Rash [Recovering/Resolving]
  - Chest discomfort [Unknown]
